FAERS Safety Report 4726904-8 (Version None)
Quarter: 2005Q3

REPORT INFORMATION
  Report Type: 
  Country: None (occurrence: None)
  Receive Date: 20050726
  Receipt Date: 20050714
  Transmission Date: 20060218
  Serious: Yes (Hospitalization)
  Sender: FDA-Public Use
  Company Number: HQWYE995205AUG04

PATIENT
  Age: 24 Month
  Sex: Female
  Weight: 10.06 kg

DRUGS (20)
  1. RAPAMUNE [Suspect]
     Indication: IMMUNOSUPPRESSANT DRUG THERAPY
     Dosage: 0.5 MG 2X PER 1 DAY
     Dates: start: 20020507
  2. RAPAMUNE [Suspect]
     Indication: PROPHYLAXIS AGAINST TRANSPLANT REJECTION
     Dosage: 0.5 MG 2X PER 1 DAY
     Dates: start: 20020507
  3. LASIX [Concomitant]
  4. PRILOSEC [Concomitant]
  5. ZYRTEC [Concomitant]
  6. PROGRAF [Concomitant]
  7. BACTRIM [Concomitant]
  8. NORVASC [Concomitant]
  9. ATENOLOL [Concomitant]
  10. LIPITOR [Concomitant]
  11. LACTOBACILLUS ACIDOPHILUS (LACTOBACILLUS  ACIDOPHILUS) [Concomitant]
  12. PREDNISONE [Concomitant]
  13. NIFEREX (POLYSACCHARIDE-IRON COMPLEX) [Concomitant]
  14. REGLAN [Concomitant]
  15. GLYCERIN (GLYCEROL) [Concomitant]
  16. LACTULOSE [Concomitant]
  17. TYLENOL [Concomitant]
  18. ZOFRAN [Concomitant]
  19. BENADRYL [Concomitant]
  20. BACTROBAN (MUPIROCIN) [Concomitant]

REACTIONS (6)
  - DEHYDRATION [None]
  - FOOD INTOLERANCE [None]
  - NAUSEA [None]
  - PERICARDIAL EFFUSION [None]
  - UPPER RESPIRATORY TRACT INFECTION [None]
  - VOMITING [None]
